FAERS Safety Report 5120850-6 (Version None)
Quarter: 2006Q4

REPORT INFORMATION
  Report Type: 
  Country: None (occurrence: None)
  Receive Date: 20061005
  Receipt Date: 20060912
  Transmission Date: 20070319
  Serious: Yes (Life-Threatening, Other)
  Sender: FDA-Public Use
  Company Number: IE-BAYER-200611118BNE

PATIENT
  Age: 72 Year
  Sex: Female

DRUGS (13)
  1. AVELOX [Suspect]
     Indication: INFECTIVE EXACERBATION OF CHRONIC OBSTRUCTIVE AIRWAYS DISEASE
     Route: 048
     Dates: start: 20060911, end: 20060911
  2. NS ASPIRIN [Concomitant]
     Route: 048
  3. LANSOPRAZOLE [Concomitant]
     Route: 048
  4. COMBIVENT NEBS [Concomitant]
     Route: 055
  5. PLAVIX [Concomitant]
     Route: 048
  6. LIPITOR [Concomitant]
     Route: 048
  7. BISOPROLOL FUMARATE [Concomitant]
     Route: 048
  8. SPIRIVA [Concomitant]
     Route: 055
  9. NICOTINELL 21 [Concomitant]
     Route: 061
  10. FUROSEMIDE [Concomitant]
     Route: 048
  11. CLEXANE [Concomitant]
     Dosage: TOTAL DAILY DOSE: 160 MG
     Route: 058
  12. GLYCERYL TRINITRATE [Concomitant]
  13. TRITACE [Concomitant]

REACTIONS (9)
  - AGITATION [None]
  - ANAPHYLACTIC REACTION [None]
  - CARDIOVASCULAR DISORDER [None]
  - CYANOSIS [None]
  - DYSPNOEA [None]
  - HYPOTENSION [None]
  - NAUSEA [None]
  - OXYGEN SATURATION DECREASED [None]
  - RESPIRATORY FAILURE [None]
